FAERS Safety Report 8825695 (Version 5)
Quarter: 2013Q1

REPORT INFORMATION
  Report Type: Spontaneous
  Country: US (occurrence: US)
  Receive Date: 20121004
  Receipt Date: 20130124
  Transmission Date: 20140127
  Serious: Yes (Other)
  Sender: FDA-Public Use
  Company Number: US-PFIZER INC-2012243152

PATIENT
  Age: 75 Year
  Sex: Male
  Weight: 61.22 kg

DRUGS (2)
  1. VIAGRA [Suspect]
     Indication: ERECTILE DYSFUNCTION
     Dosage: 100 MG, AS NEEDED
     Route: 048
     Dates: end: 201209
  2. BENICAR [Concomitant]
     Indication: HYPERTENSION
     Dosage: 40 MG, UNK

REACTIONS (12)
  - Urinary retention [Recovered/Resolved]
  - Hypertension [Recovered/Resolved]
  - Prostatic disorder [Recovered/Resolved]
  - Prostatomegaly [Recovered/Resolved]
  - Testicular disorder [Recovered/Resolved]
  - Urine flow decreased [Recovered/Resolved]
  - Nausea [Recovered/Resolved]
  - Diarrhoea [Recovered/Resolved]
  - Insomnia [Recovered/Resolved]
  - Feeling abnormal [Recovered/Resolved]
  - Blood pressure systolic decreased [Recovered/Resolved]
  - Drug ineffective [Unknown]
